FAERS Safety Report 6467487-4 (Version None)
Quarter: 2009Q4

REPORT INFORMATION
  Report Type: 
  Country: None (occurrence: None)
  Receive Date: 20091202
  Receipt Date: 20091123
  Transmission Date: 20100525
  Serious: Yes (Hospitalization)
  Sender: FDA-Public Use
  Company Number: DE-ABBOTT-09P-062-0561699-00

PATIENT
  Sex: Female
  Weight: 63 kg

DRUGS (3)
  1. HUMIRA [Suspect]
     Indication: ANKYLOSING SPONDYLITIS
     Route: 058
     Dates: start: 20060801, end: 20080901
  2. HUMIRA [Suspect]
     Route: 058
     Dates: start: 20081219
  3. VOLTAREN [Concomitant]
     Indication: ANKYLOSING SPONDYLITIS
     Route: 048
     Dates: start: 20080902, end: 20081218

REACTIONS (2)
  - LEIOMYOMA [None]
  - PSORIASIS [None]
